FAERS Safety Report 16022298 (Version 1)
Quarter: 2019Q1

REPORT INFORMATION
  Report Type: Spontaneous
  Country: DE (occurrence: DE)
  Receive Date: 20190301
  Receipt Date: 20190301
  Transmission Date: 20190418
  Serious: Yes (Other)
  Sender: FDA-Public Use
  Company Number: DE-TORRENT-00013447

PATIENT
  Sex: Female

DRUGS (1)
  1. QUETIAPIN HEUMANN 400 MG FILMTABLETTEN [Suspect]
     Active Substance: QUETIAPINE FUMARATE
     Indication: PRODUCT USED FOR UNKNOWN INDICATION
     Dates: start: 20180810, end: 20190216

REACTIONS (1)
  - Drug dependence [Unknown]
